FAERS Safety Report 10025645 (Version 3)
Quarter: 2014Q2

REPORT INFORMATION
  Report Type: Spontaneous
  Country: NL (occurrence: NL)
  Receive Date: 20140320
  Receipt Date: 20140627
  Transmission Date: 20141212
  Serious: Yes (Other)
  Sender: FDA-Public Use
  Company Number: NL-GALDERMA-NL14000974

PATIENT
  Age: 36 Year
  Sex: Female
  Weight: 64 kg

DRUGS (2)
  1. PLIAGLIS [Suspect]
     Indication: ANAESTHESIA PROCEDURE
     Dosage: 7%-7%
     Route: 061
     Dates: start: 20140311
  2. ZELITREX [Concomitant]
     Indication: ORAL HERPES
     Route: 048

REACTIONS (9)
  - Palpitations [Recovered/Resolved]
  - Swelling face [Recovering/Resolving]
  - Somnolence [Recovered/Resolved]
  - Confusional state [Recovered/Resolved]
  - Blister [Recovering/Resolving]
  - Skin burning sensation [Recovering/Resolving]
  - Skin induration [Recovering/Resolving]
  - Skin discolouration [Recovering/Resolving]
  - Erythema [Not Recovered/Not Resolved]
